FAERS Safety Report 7156622-0 (Version None)
Quarter: 2010Q4

REPORT INFORMATION
  Report Type: 
  Country: None (occurrence: None)
  Receive Date: 20101214
  Receipt Date: 20091130
  Transmission Date: 20110411
  Serious: Yes (Other)
  Sender: FDA-Public Use
  Company Number: US-ASTRAZENECA-2009SE16792

PATIENT
  Age: 87 Year
  Sex: Female
  Weight: 57.2 kg

DRUGS (8)
  1. CRESTOR [Suspect]
     Indication: BLOOD CHOLESTEROL INCREASED
     Route: 048
     Dates: start: 20090629, end: 20090721
  2. ASPIRIN [Concomitant]
  3. TYLENOL (CAPLET) [Concomitant]
  4. CENTRUM SILVER [Concomitant]
  5. OSTEO BI-FLEX [Concomitant]
  6. CALCIUM W/ VITAMIN D [Concomitant]
     Dosage: BID
  7. FLAX SEED OIL [Concomitant]
     Dosage: QD
  8. LYSINE [Concomitant]

REACTIONS (5)
  - ABDOMINAL PAIN [None]
  - HYPERHIDROSIS [None]
  - MUSCULOSKELETAL DISCOMFORT [None]
  - MYALGIA [None]
  - PYREXIA [None]
